FAERS Safety Report 19135633 (Version 1)
Quarter: 2021Q2

REPORT INFORMATION
  Report Type: Spontaneous
  Country: US (occurrence: US)
  Receive Date: 20210414
  Receipt Date: 20210414
  Transmission Date: 20210717
  Serious: Yes (Other)
  Sender: FDA-Public Use
  Company Number: US-COOPERSURGICAL, INC.-US-2021CPS000909

PATIENT
  Age: 46 Year
  Sex: Female
  Weight: 81.63 kg

DRUGS (4)
  1. IRON [Concomitant]
     Active Substance: IRON
     Indication: ANAEMIA
     Dosage: UNK
     Route: 005
  2. PARAGARD T 380A [Suspect]
     Active Substance: COPPER
     Indication: CONTRACEPTION
     Dosage: UNK
     Route: 015
     Dates: start: 20180621, end: 20210225
  3. HUMIRA [Concomitant]
     Active Substance: ADALIMUMAB
     Indication: COLITIS ULCERATIVE
     Dosage: GIVEN EVERY 14 DAYS
     Route: 065
  4. NEXIUM [Concomitant]
     Active Substance: ESOMEPRAZOLE MAGNESIUM
     Indication: GASTROOESOPHAGEAL REFLUX DISEASE
     Dosage: UNK
     Route: 065

REACTIONS (3)
  - Uterine leiomyoma [Not Recovered/Not Resolved]
  - Complication associated with device [Recovered/Resolved]
  - Device expulsion [Recovered/Resolved]

NARRATIVE: CASE EVENT DATE: 20210219
